FAERS Safety Report 12416436 (Version 2)
Quarter: 2018Q1

REPORT INFORMATION
  Report Type: Spontaneous
  Country: IT (occurrence: IT)
  Receive Date: 20160530
  Receipt Date: 20180315
  Transmission Date: 20180508
  Serious: Yes (Other)
  Sender: FDA-Public Use
  Company Number: IT-PFIZER INC-2016278703

PATIENT
  Age: 59 Year
  Sex: Male

DRUGS (5)
  1. FLUOROURACIL. [Suspect]
     Active Substance: FLUOROURACIL
     Indication: LARYNGEAL SQUAMOUS CELL CARCINOMA
     Dosage: 800 MG/M2, CYCLIC (ON DAY 1-4 AND EVERY 21 DAYS FOR 3 CYCLES)
     Dates: start: 2010
  2. CETUXIMAB. [Suspect]
     Active Substance: CETUXIMAB
     Indication: LARYNGEAL SQUAMOUS CELL CARCINOMA
     Dosage: 400 MG/M2, UNK
     Dates: start: 2010
  3. CETUXIMAB. [Suspect]
     Active Substance: CETUXIMAB
     Dosage: 250 MG/M2, WEEKLY
  4. DOCETAXEL. [Suspect]
     Active Substance: DOCETAXEL
     Indication: LARYNGEAL SQUAMOUS CELL CARCINOMA
     Dosage: 75 MG/M2, CYCLIC (ON DAY 1 AND EVERY 21 DAYS FOR 3 CYCLES)
     Dates: start: 2010
  5. EVEROLIMUS. [Concomitant]
     Active Substance: EVEROLIMUS
     Indication: IMMUNOSUPPRESSANT DRUG THERAPY
     Dosage: 1 MG, 2X/DAY
     Dates: start: 2010

REACTIONS (5)
  - Folliculitis [Unknown]
  - Pharyngeal oedema [Unknown]
  - Laryngeal oedema [Unknown]
  - Mucosal inflammation [Unknown]
  - Dysphagia [Unknown]

NARRATIVE: CASE EVENT DATE: 2010
